FAERS Safety Report 6245034-X (Version None)
Quarter: 2009Q2

REPORT INFORMATION
  Report Type: 
  Country: None (occurrence: None)
  Receive Date: 20090623
  Receipt Date: 20090623
  Transmission Date: 20091009
  Serious: Yes (Life-Threatening, Disabling)
  Sender: FDA-Public Use
  Company Number: None

PATIENT
  Sex: Male
  Weight: 50.6 kg

DRUGS (1)
  1. PROTAMINE SULFATE [Suspect]
     Indication: CARDIAC OPERATION
     Dosage: 350 MG/35 ML ONCE IV
     Route: 042
     Dates: start: 20090319, end: 20090319

REACTIONS (3)
  - HYPOTENSION [None]
  - PROCEDURAL COMPLICATION [None]
  - URTICARIA [None]
